FAERS Safety Report 4961696-9 (Version None)
Quarter: 2006Q2

REPORT INFORMATION
  Report Type: 
  Country: None (occurrence: None)
  Receive Date: 20060404
  Receipt Date: 20060320
  Transmission Date: 20061013
  Serious: Yes (Other)
  Sender: FDA-Public Use
  Company Number: DEWYE491421MAR06

PATIENT
  Age: 4 Year

DRUGS (2)
  1. ENBREL [Suspect]
     Indication: JUVENILE ARTHRITIS
     Dosage: UNKNOWN
     Route: 058
  2. CORTISONE ACETATE TAB [Suspect]
     Indication: JUVENILE ARTHRITIS
     Dosage: UNKNOWN
     Route: 048
     Dates: end: 20001001

REACTIONS (4)
  - DEPRESSION [None]
  - ECZEMA NUMMULAR [None]
  - HEADACHE [None]
  - MOLLUSCUM CONTAGIOSUM [None]
